FAERS Safety Report 16083256 (Version 1)
Quarter: 2019Q1

REPORT INFORMATION
  Report Type: Spontaneous
  Country: US (occurrence: US)
  Receive Date: 20190318
  Receipt Date: 20190318
  Transmission Date: 20190418
  Serious: No
  Sender: FDA-Public Use
  Company Number: US-AUROBINDO-AUR-APL-2019-006024

PATIENT
  Sex: Female

DRUGS (1)
  1. EZETIMIBE TABLETS 10 MG USP [Suspect]
     Active Substance: EZETIMIBE
     Indication: HYPERTENSION
     Dosage: UNK, ONCE A DAY
     Route: 065
     Dates: start: 20190118, end: 20190118

REACTIONS (7)
  - Arthralgia [Recovered/Resolved]
  - Paraesthesia [Recovered/Resolved]
  - Gait disturbance [Recovered/Resolved]
  - Lip swelling [Recovered/Resolved]
  - Malaise [Recovered/Resolved]
  - Headache [Recovered/Resolved]
  - Dizziness [Recovered/Resolved]

NARRATIVE: CASE EVENT DATE: 20190118
